FAERS Safety Report 5038263-4 (Version None)
Quarter: 2006Q2

REPORT INFORMATION
  Report Type: 
  Country: None (occurrence: None)
  Receive Date: 20060628
  Receipt Date: 20060628
  Transmission Date: 20061013
  Serious: Yes (Hospitalization)
  Sender: FDA-Public Use
  Company Number: None

PATIENT
  Sex: Female
  Weight: 113.3993 kg

DRUGS (3)
  1. CELEBREX [Suspect]
     Indication: ARTHRALGIA
     Dosage: 200 MG DAILY PO
     Route: 048
     Dates: start: 20040910, end: 20060301
  2. CELEBREX [Suspect]
     Indication: ARTHROPATHY
     Dosage: 200 MG DAILY PO
     Route: 048
     Dates: start: 20040910, end: 20060301
  3. CELEBREX [Suspect]
     Indication: INFLAMMATION
     Dosage: 200 MG DAILY PO
     Route: 048
     Dates: start: 20040910, end: 20060301

REACTIONS (9)
  - FEELING ABNORMAL [None]
  - HYPERSENSITIVITY [None]
  - OBSTRUCTIVE AIRWAYS DISORDER [None]
  - RESPIRATORY DISTRESS [None]
  - SKIN DISCOLOURATION [None]
  - SKIN DISORDER [None]
  - STEVENS-JOHNSON SYNDROME [None]
  - SWELLING FACE [None]
  - SWOLLEN TONGUE [None]
